FAERS Safety Report 8446938-X (Version None)
Quarter: 2012Q2

REPORT INFORMATION
  Report Type: 
  Country: None (occurrence: None)
  Receive Date: 20120613
  Receipt Date: 20120613
  Transmission Date: 20120825
  Serious: Yes (Hospitalization)
  Sender: FDA-Public Use
  Company Number: None

PATIENT
  Age: 24 Year
  Sex: Female
  Weight: 109 kg

DRUGS (1)
  1. CITALOPRAM HYDROBROMIDE [Suspect]
     Indication: PANIC ATTACK
     Dosage: 10 MG  DAILY PO
     Route: 048
     Dates: start: 20120119, end: 20120120

REACTIONS (10)
  - TACHYCARDIA [None]
  - IDIOSYNCRATIC DRUG REACTION [None]
  - MUSCLE CONTRACTIONS INVOLUNTARY [None]
  - SEROTONIN SYNDROME [None]
  - GAIT DISTURBANCE [None]
  - BLOOD PRESSURE INCREASED [None]
  - UNDERDOSE [None]
  - TREMOR [None]
  - DYSPHEMIA [None]
  - HEART RATE INCREASED [None]
